FAERS Safety Report 25915381 (Version 1)
Quarter: 2025Q4

REPORT INFORMATION
  Report Type: Spontaneous
  Country: US (occurrence: US)
  Receive Date: 20251013
  Receipt Date: 20251013
  Transmission Date: 20260119
  Serious: No
  Sender: ANI
  Company Number: US-ANIPHARMA-2025-US-035208

PATIENT
  Age: 35 Year
  Sex: Female
  Weight: 79.83 kg

DRUGS (6)
  1. CORTICOTROPIN [Suspect]
     Active Substance: CORTICOTROPIN
     Indication: Pulmonary sarcoidosis
     Dates: start: 20250619, end: 20250714
  2. ALBUTEROL [Concomitant]
     Active Substance: ALBUTEROL
  3. AZATHIOPRINE [Concomitant]
     Active Substance: AZATHIOPRINE
  4. ADDERALL [Concomitant]
     Active Substance: AMPHETAMINE ASPARTATE\AMPHETAMINE SULFATE\DEXTROAMPHETAMINE SACCHARATE\DEXTROAMPHETAMINE SULFATE
  5. BUPROPION HYDROCHLORIDE SR [Concomitant]
     Active Substance: BUPROPION HYDROCHLORIDE
  6. PREDNISONE [Concomitant]
     Active Substance: PREDNISONE

REACTIONS (3)
  - Swelling [Recovering/Resolving]
  - Poor quality sleep [Not Recovered/Not Resolved]
  - Snoring [Not Recovered/Not Resolved]

NARRATIVE: CASE EVENT DATE: 20250710
